FAERS Safety Report 23338188 (Version 1)
Quarter: 2023Q4

REPORT INFORMATION
  Report Type: Spontaneous
  Country: BE (occurrence: BE)
  Receive Date: 20231226
  Receipt Date: 20231226
  Transmission Date: 20240110
  Serious: Yes (Life-Threatening)
  Sender: FDA-Public Use
  Company Number: None

PATIENT
  Age: 49 Year
  Sex: Male
  Weight: 81 kg

DRUGS (16)
  1. AVONEX PEN [Suspect]
     Active Substance: INTERFERON BETA-1A
     Indication: Relapsing-remitting multiple sclerosis
     Route: 050
     Dates: start: 20230824, end: 20231120
  2. AVONEX PEN [Suspect]
     Active Substance: INTERFERON BETA-1A
  3. AVONEX PEN [Suspect]
     Active Substance: INTERFERON BETA-1A
  4. AVONEX PEN [Suspect]
     Active Substance: INTERFERON BETA-1A
  5. ACETAMINOPHEN [Concomitant]
     Active Substance: ACETAMINOPHEN
     Indication: Hernia pain
     Route: 050
     Dates: start: 202305
  6. SPASMOMEN 40 MG [Concomitant]
     Indication: Product used for unknown indication
     Dosage: STABLE MEDICATION SINCE MORE THAN 12 MONTHS
     Route: 050
  7. Deanxit 10 MG/0,5 MG [Concomitant]
     Indication: Product used for unknown indication
     Dosage: STABLE MEDICATION SINCE MORE THAN 12 MONTHS
     Route: 050
  8. COVERAM 10 MG/ 5 MG [Concomitant]
     Indication: Product used for unknown indication
     Dosage: STABLE MEDICATION SINCE MORE THAN 12 MONTHS
     Route: 050
  9. SIFROL 0.18 MG [Concomitant]
     Indication: Product used for unknown indication
     Dosage: STABLE MEDICATION SINCE MORE THAN 12 MONTHS PRIOR TO GOING TO SLEEP
     Route: 050
  10. IRON [Concomitant]
     Active Substance: IRON
     Indication: Product used for unknown indication
     Route: 050
     Dates: start: 202309
  11. Tramadol Retard 50mg, capsules with extended release, hard [Concomitant]
     Indication: Product used for unknown indication
     Dosage: 50MG
     Route: 050
     Dates: start: 202305
  12. TRAMADOL HYDROCHLORIDE [Concomitant]
     Active Substance: TRAMADOL HYDROCHLORIDE
     Indication: Product used for unknown indication
     Route: 050
     Dates: start: 202305
  13. PANTOPRAZOLE SODIUM [Concomitant]
     Active Substance: PANTOPRAZOLE SODIUM
     Indication: Product used for unknown indication
     Route: 050
     Dates: start: 202305
  14. TRAZODONE [Concomitant]
     Active Substance: TRAZODONE HYDROCHLORIDE
     Indication: Product used for unknown indication
     Dosage: STABLE MEDICATION SINCE MORE THAN 12 MONTHS PRIOR TO GOING TO SLEEP
     Route: 050
  15. REDOMEX 25 MG [Concomitant]
     Indication: Product used for unknown indication
     Dosage: STABLE MEDICATION SINCE MORE THAN 12 MONTHS
     Route: 050
  16. MAGNESIUM [Concomitant]
     Active Substance: MAGNESIUM
     Indication: Product used for unknown indication
     Route: 050
     Dates: start: 202309

REACTIONS (3)
  - Suicide threat [Recovered/Resolved]
  - Suicidal ideation [Recovered/Resolved]
  - Depression [Recovered/Resolved]

NARRATIVE: CASE EVENT DATE: 20230907
